FAERS Safety Report 9900686 (Version 1)
Quarter: 2014Q1

REPORT INFORMATION
  Report Type: Spontaneous
  Country: BR (occurrence: BR)
  Receive Date: 20140217
  Receipt Date: 20140217
  Transmission Date: 20141002
  Serious: No
  Sender: FDA-Public Use
  Company Number: BR-JNJFOC-20140202379

PATIENT
  Age: 69 Year
  Sex: Female

DRUGS (3)
  1. DUROGESIC D-TRANS [Suspect]
     Indication: PAIN
     Route: 062
  2. TRAMAL [Concomitant]
     Route: 065
  3. DIPYRONE [Concomitant]
     Route: 065

REACTIONS (2)
  - Inappropriate schedule of drug administration [Not Recovered/Not Resolved]
  - Pain [Not Recovered/Not Resolved]
